FAERS Safety Report 8118150-5 (Version None)
Quarter: 2012Q1

REPORT INFORMATION
  Report Type: 
  Country: None (occurrence: None)
  Receive Date: 20120202
  Receipt Date: 20120130
  Transmission Date: 20120608
  Serious: Yes (Other)
  Sender: FDA-Public Use
  Company Number: GB-GDP-12412900

PATIENT
  Age: 51 Year
  Sex: Female
  Weight: 50.8 kg

DRUGS (1)
  1. DOXYCYCLINE [Suspect]
     Indication: PRODUCT USED FOR UNKNOWN INDICATION
     Dates: start: 20120117

REACTIONS (1)
  - RASH [None]
